FAERS Safety Report 9373246 (Version 2)
Quarter: 2013Q3

REPORT INFORMATION
  Report Type: Spontaneous
  Country: DE (occurrence: DE)
  Receive Date: 20130627
  Receipt Date: 20130715
  Transmission Date: 20140515
  Serious: Yes (Death, Other)
  Sender: FDA-Public Use
  Company Number: DE-TEVA-415117USA

PATIENT
  Age: 71 Year
  Sex: Male

DRUGS (2)
  1. BENDAMUSTINE [Suspect]
     Indication: DIFFUSE LARGE B-CELL LYMPHOMA
  2. RITUXIMAB [Suspect]
     Indication: DIFFUSE LARGE B-CELL LYMPHOMA

REACTIONS (2)
  - Progressive multifocal leukoencephalopathy [Fatal]
  - Leukopenia [Unknown]
